FAERS Safety Report 7022235-4 (Version None)
Quarter: 2010Q3

REPORT INFORMATION
  Report Type: 
  Country: None (occurrence: None)
  Receive Date: 20100930
  Receipt Date: 20100917
  Transmission Date: 20110219
  Serious: Yes (Disabling, Other)
  Sender: FDA-Public Use
  Company Number: GB-ELI_LILLY_AND_COMPANY-GB201009004469

PATIENT
  Age: 87 Year
  Sex: Female

DRUGS (4)
  1. FLUOXETINE [Suspect]
     Indication: DEPRESSION
     Dosage: 20 MG, DAILY (1/D)
     Route: 048
     Dates: end: 20100905
  2. BENDROFLUMETHIAZIDE [Concomitant]
     Indication: HYPERTENSION
     Dosage: 2.5 MG, UNKNOWN
     Route: 048
     Dates: start: 20050101
  3. DIAZEPAM [Concomitant]
     Indication: ANXIETY
     Dosage: 2 MG, UNKNOWN
     Route: 048
     Dates: start: 20100101
  4. PERINDOPRIL [Concomitant]
     Indication: HYPERTENSION
     Dosage: 8 MG, UNKNOWN
     Route: 048
     Dates: start: 20050101

REACTIONS (3)
  - MUSCULAR WEAKNESS [None]
  - MYOPATHY [None]
  - URTICARIA [None]
